FAERS Safety Report 23526665 (Version 1)
Quarter: 2024Q1

REPORT INFORMATION
  Report Type: Spontaneous
  Country: US (occurrence: US)
  Receive Date: 20240215
  Receipt Date: 20240215
  Transmission Date: 20240410
  Serious: No
  Sender: FDA-Public Use
  Company Number: US-PFIZER INC-202400038029

PATIENT
  Age: 13 Year
  Sex: Female
  Weight: 40.37 kg

DRUGS (1)
  1. GENOTROPIN [Suspect]
     Active Substance: SOMATROPIN
     Dosage: 1.6 MG

REACTIONS (3)
  - Injection site pain [Unknown]
  - Injection site irritation [Unknown]
  - Injection site reaction [Unknown]
